FAERS Safety Report 8265059-2 (Version None)
Quarter: 2012Q2

REPORT INFORMATION
  Report Type: 
  Country: None (occurrence: None)
  Receive Date: 20120406
  Receipt Date: 20120402
  Transmission Date: 20120825
  Serious: Yes (Other)
  Sender: FDA-Public Use
  Company Number: PHEH2012US001867

PATIENT
  Sex: Male
  Weight: 67.4 kg

DRUGS (10)
  1. TOBI [Suspect]
     Indication: CYSTIC FIBROSIS
     Dosage: 300 MG, BID QO 28 DAYS
  2. ZENPEP [Concomitant]
     Route: 048
  3. VENTOLIN [Concomitant]
  4. TOBI [Suspect]
     Dates: start: 20110301
  5. SALINE [Concomitant]
  6. ALBUTEROL [Concomitant]
  7. AQUADEK [Concomitant]
  8. PULMOZYME [Concomitant]
  9. AZITHROMYCIN [Concomitant]
  10. HYPERSAL [Concomitant]

REACTIONS (2)
  - STAPHYLOCOCCAL INFECTION [None]
  - PULMONARY FUNCTION TEST DECREASED [None]
